FAERS Safety Report 6258308-3 (Version None)
Quarter: 2009Q3

REPORT INFORMATION
  Report Type: 
  Country: None (occurrence: None)
  Receive Date: 20090701
  Receipt Date: 20081023
  Transmission Date: 20100115
  Serious: Yes (Other)
  Sender: FDA-Public Use
  Company Number: 255380

PATIENT
  Age: 53 Year
  Sex: Female

DRUGS (2)
  1. KLONOPIN [Suspect]
     Indication: TINNITUS
     Dosage: 2 MG ORAL
     Route: 048
     Dates: start: 19980101
  2. CLONAZEPAM [Suspect]
     Indication: DRUG USE FOR UNKNOWN INDICATION

REACTIONS (5)
  - AMNESIA [None]
  - GASTROOESOPHAGEAL REFLUX DISEASE [None]
  - HEADACHE [None]
  - OROPHARYNGEAL PAIN [None]
  - REACTION TO DRUG EXCIPIENTS [None]
